FAERS Safety Report 6658149-9 (Version None)
Quarter: 2010Q1

REPORT INFORMATION
  Report Type: 
  Country: None (occurrence: None)
  Receive Date: 20100330
  Receipt Date: 20100324
  Transmission Date: 20100710
  Serious: Yes (Other)
  Sender: FDA-Public Use
  Company Number: A0852238A

PATIENT
  Age: 57 Year
  Sex: Male

DRUGS (1)
  1. PROMACTA [Suspect]
     Indication: AUTOIMMUNE THROMBOCYTOPENIA

REACTIONS (1)
  - LIVER DISORDER [None]
